FAERS Safety Report 4314366-4 (Version None)
Quarter: 2004Q1

REPORT INFORMATION
  Report Type: 
  Country: None (occurrence: None)
  Receive Date: 20040308
  Receipt Date: 20040224
  Transmission Date: 20041129
  Serious: Yes (Hospitalization)
  Sender: FDA-Public Use
  Company Number: 163-20785-04020675

PATIENT
  Age: 54 Year
  Sex: Male
  Weight: 37.2403 kg

DRUGS (27)
  1. THALOMID [Suspect]
     Indication: MULTIPLE MYELOMA
     Dosage: SEE IMAGE
     Route: 048
     Dates: start: 20030408, end: 20030601
  2. THALOMID [Suspect]
     Indication: MULTIPLE MYELOMA
     Dosage: SEE IMAGE
     Route: 048
     Dates: start: 20030602
  3. MELPHALAN (MELPHALAN) [Suspect]
     Indication: MULTIPLE MYELOMA
     Dosage: 200 MG/M2, ORAL
     Route: 048
     Dates: start: 20030428, end: 20030428
  4. MELPHALAN (MELPHALAN) [Suspect]
     Indication: MULTIPLE MYELOMA
     Dosage: 200 MG/M2, ORAL
     Route: 048
     Dates: start: 20030721, end: 20030721
  5. FOLATE (FOLATE SODIUM) [Concomitant]
  6. ACYCLOVIR [Concomitant]
  7. PROTONIX [Concomitant]
  8. COUMADIN [Concomitant]
  9. LIPITOR [Concomitant]
  10. NIFEREX (POLYSACCHRIDE IRON COMPLEX) [Concomitant]
  11. NEURONTIN [Concomitant]
  12. PROCRIT (ERYTHROPOIETIN) [Concomitant]
  13. LIDODERM (LIDOCAINE) [Concomitant]
  14. MULTIVITAMIN (MULTIVITAMINS) [Concomitant]
  15. VITAMIN E [Concomitant]
  16. CALCIUM (CALCIUM) [Concomitant]
  17. METAMUCIL (METAMUCIL) [Concomitant]
  18. VANCOMYCIN [Concomitant]
  19. AREDIA [Concomitant]
  20. LORTAB [Concomitant]
  21. DOXYCYCLINE [Concomitant]
  22. ZOSYN [Concomitant]
  23. MEDROL [Concomitant]
  24. VIOXX [Concomitant]
  25. ZYRTEC [Concomitant]
  26. MAALOX (MAALOX) [Concomitant]
  27. VANCOMYCIN [Concomitant]

REACTIONS (29)
  - ALOPECIA [None]
  - ANAEMIA [None]
  - BACK PAIN [None]
  - CONSTIPATION [None]
  - CONTUSION [None]
  - COUGH [None]
  - DECREASED APPETITE [None]
  - DRUG INEFFECTIVE [None]
  - FEBRILE NEUTROPENIA [None]
  - HEADACHE [None]
  - HYPOAESTHESIA [None]
  - HYPOCALCAEMIA [None]
  - HYPOXIA [None]
  - INTERVERTEBRAL DISC DEGENERATION [None]
  - INTERVERTEBRAL DISC SPACE NARROWING [None]
  - INTERVERTEBRAL DISCITIS [None]
  - LOBAR PNEUMONIA [None]
  - METASTASES TO BONE [None]
  - NAUSEA [None]
  - OESOPHAGITIS [None]
  - OSTEOARTHRITIS [None]
  - OSTEOMYELITIS [None]
  - PARAESTHESIA [None]
  - PHLEBOTHROMBOSIS [None]
  - PNEUMONITIS [None]
  - SINUSITIS [None]
  - STAPHYLOCOCCAL BACTERAEMIA [None]
  - STAPHYLOCOCCAL INFECTION [None]
  - WEIGHT DECREASED [None]
